FAERS Safety Report 18542826 (Version 1)
Quarter: 2020Q4

REPORT INFORMATION
  Report Type: Spontaneous
  Country: BR (occurrence: BR)
  Receive Date: 20201124
  Receipt Date: 20201124
  Transmission Date: 20210114
  Serious: Yes (Other)
  Sender: FDA-Public Use
  Company Number: BR-ELI_LILLY_AND_COMPANY-BR202011006838

PATIENT
  Sex: Male

DRUGS (2)
  1. TANSULOSINA [Concomitant]
     Dosage: UNK, UNKNOWN
     Route: 065
     Dates: start: 2016
  2. CIALIS [Suspect]
     Active Substance: TADALAFIL
     Indication: PROSTATIC DISORDER
     Dosage: 5 MG, DAILY
     Route: 065
     Dates: start: 2016

REACTIONS (2)
  - Prostate cancer [Unknown]
  - Off label use [Unknown]

NARRATIVE: CASE EVENT DATE: 2016
